FAERS Safety Report 6091544-8 (Version None)
Quarter: 2009Q1

REPORT INFORMATION
  Report Type: 
  Country: None (occurrence: None)
  Receive Date: 20090225
  Receipt Date: 20090218
  Transmission Date: 20090719
  Serious: Yes (Hospitalization)
  Sender: FDA-Public Use
  Company Number: PHHO2007DE14030

PATIENT
  Sex: Female
  Weight: 95.8 kg

DRUGS (6)
  1. RAD 666 RAD+TAB [Suspect]
     Indication: RENAL TRANSPLANT
  2. NEORAL [Suspect]
     Indication: RENAL TRANSPLANT
     Dosage: 1.5 MG, BID
     Route: 048
  3. MYFORTIC [Suspect]
     Indication: RENAL TRANSPLANT
     Route: 048
  4. PANTOZOL [Suspect]
  5. VALCYTE [Suspect]
  6. COTRIM [Suspect]

REACTIONS (3)
  - CYST DRAINAGE [None]
  - LEUKOPENIA [None]
  - LYMPHOCELE [None]
